FAERS Safety Report 7879513-6 (Version None)
Quarter: 2011Q4

REPORT INFORMATION
  Report Type: 
  Country: None (occurrence: None)
  Receive Date: 20111101
  Receipt Date: 20110603
  Transmission Date: 20120403
  Serious: No
  Sender: FDA-Public Use
  Company Number: US-ABBOTT-11P-163-0730991-00

PATIENT
  Sex: Female

DRUGS (6)
  1. PRILOSEC [Suspect]
     Indication: HELICOBACTER INFECTION
     Dates: start: 20110505, end: 20110512
  2. GLEEVEC [Suspect]
     Dates: start: 20110517
  3. BIAXIN [Suspect]
     Indication: HELICOBACTER INFECTION
     Dates: start: 20110505, end: 20110512
  4. GLEEVEC [Suspect]
     Indication: GASTROINTESTINAL STROMAL TUMOUR
     Dates: start: 20100101, end: 20110510
  5. LEVOXYL [Concomitant]
     Indication: THYROIDECTOMY
  6. FLAGYL [Suspect]
     Indication: HELICOBACTER INFECTION
     Dates: start: 20110505, end: 20110512

REACTIONS (6)
  - DEHYDRATION [None]
  - DIARRHOEA [None]
  - VOMITING [None]
  - WEIGHT DECREASED [None]
  - NAUSEA [None]
  - ASTHENIA [None]
